FAERS Safety Report 7197649-2 (Version None)
Quarter: 2010Q4

REPORT INFORMATION
  Report Type: 
  Country: None (occurrence: None)
  Receive Date: 20101214
  Receipt Date: 20101129
  Transmission Date: 20110411
  Serious: Yes (Hospitalization)
  Sender: FDA-Public Use
  Company Number: 023440

PATIENT
  Sex: Male

DRUGS (5)
  1. CERTOLIZUMAB PEGOL (CERTOLIZUMAB PEGOL) [Suspect]
     Indication: RHEUMATOID ARTHRITIS
     Dosage: 200 MG 1X/2 WEEKS SUBCUTANEOUS
     Route: 058
     Dates: start: 20091015
  2. SALAZOSULFAPYRIDINE [Concomitant]
  3. FAMOTIDINE [Concomitant]
  4. PREDNISOLONE [Concomitant]
  5. MELOXICAM [Concomitant]

REACTIONS (1)
  - DUODENAL ULCER HAEMORRHAGE [None]
